FAERS Safety Report 5731852-0 (Version None)
Quarter: 2008Q2

REPORT INFORMATION
  Report Type: 
  Country: None (occurrence: None)
  Receive Date: 20080508
  Receipt Date: 20080506
  Transmission Date: 20081010
  Serious: Yes (Hospitalization)
  Sender: FDA-Public Use
  Company Number: B0519270A

PATIENT
  Age: 74 Year
  Sex: Female

DRUGS (2)
  1. FORTUM [Suspect]
     Dosage: 1G PER DAY
     Route: 042
     Dates: start: 20080321, end: 20080326
  2. TIBERAL [Suspect]
     Dosage: 4G PER DAY
     Route: 042
     Dates: start: 20080321, end: 20080326

REACTIONS (3)
  - PRURITUS [None]
  - RASH MACULO-PAPULAR [None]
  - TOXIC SKIN ERUPTION [None]
